FAERS Safety Report 18594700 (Version 2)
Quarter: 2020Q4

REPORT INFORMATION
  Report Type: Report from Study
  Country: JP (occurrence: JP)
  Receive Date: 20201209
  Receipt Date: 20201211
  Transmission Date: 20210114
  Serious: Yes (Hospitalization)
  Sender: FDA-Public Use
  Company Number: JP-ASTELLAS-2020JP018775

PATIENT
  Age: 66 Year
  Sex: Male
  Weight: 47 kg

DRUGS (4)
  1. SALIVEHT [Concomitant]
     Indication: DRY MOUTH
     Dosage: ADEQUATE DOSE, AS NEEDED
     Route: 050
     Dates: start: 20200827
  2. ASG-22CE [Suspect]
     Active Substance: ENFORTUMAB VEDOTIN
     Indication: HYPOPHARYNGEAL CANCER
     Dosage: 1.25 MG/KG, ONCE A WEEK, WEEKLY FOR 3 CONSECUTIVE WEEKS FOLLOWED BY 1 WEEK REST
     Route: 065
     Dates: start: 20201001
  3. MYSER [CYCLOSERINE] [Concomitant]
     Active Substance: CYCLOSERINE
     Indication: EXCESSIVE GRANULATION TISSUE
     Dosage: ADEQUATE DOSE, ONCE DAILY
     Route: 050
     Dates: start: 20201103
  4. DEXART [Concomitant]
     Active Substance: DEXAMETHASONE SODIUM PHOSPHATE
     Indication: PROPHYLAXIS
     Dosage: 6.6 MG, ADMINISTRATION DAY OF THE STUDY DRUG
     Route: 042
     Dates: start: 20201105

REACTIONS (2)
  - Pneumonia bacterial [Recovering/Resolving]
  - Fatigue [Not Recovered/Not Resolved]

NARRATIVE: CASE EVENT DATE: 20201126
